FAERS Safety Report 25009233 (Version 2)
Quarter: 2025Q1

REPORT INFORMATION
  Report Type: Spontaneous
  Country: JP (occurrence: JP)
  Receive Date: 20250225
  Receipt Date: 20250307
  Transmission Date: 20250409
  Serious: Yes (Hospitalization, Other)
  Sender: TEVA
  Company Number: JP-TEVA-VS-3299891

PATIENT
  Age: 74 Year
  Sex: Female

DRUGS (3)
  1. CARBOPLATIN [Suspect]
     Active Substance: CARBOPLATIN
     Indication: Ureteric cancer
     Route: 065
  2. PEMBROLIZUMAB [Suspect]
     Active Substance: PEMBROLIZUMAB
     Indication: Ureteric cancer
     Route: 065
  3. GEMCITABINE [Suspect]
     Active Substance: GEMCITABINE
     Indication: Ureteric cancer
     Route: 065

REACTIONS (4)
  - Thyroiditis [Unknown]
  - Hypophysitis [Recovering/Resolving]
  - Type 1 diabetes mellitus [Recovering/Resolving]
  - Drug ineffective [Unknown]
